FAERS Safety Report 17889327 (Version 5)
Quarter: 2020Q3

REPORT INFORMATION
  Report Type: Spontaneous
  Country: US (occurrence: US)
  Receive Date: 20200612
  Receipt Date: 20200701
  Transmission Date: 20201103
  Serious: No
  Sender: FDA-Public Use
  Company Number: US-LEO PHARMA-329919

PATIENT
  Sex: Male

DRUGS (2)
  1. DAIVONEX [Suspect]
     Active Substance: CALCIPOTRIENE
     Indication: MALIGNANT MELANOMA
     Dosage: TWICE PER DAY FOR 10 DAYS THEN 10 DAYS NO MEDICATION, DID THIS FOR 3 ROUNDS
     Route: 061
  2. FLUOROURACIL. [Suspect]
     Active Substance: FLUOROURACIL
     Indication: MALIGNANT MELANOMA
     Dosage: 2X PER DAY FOR 10 DAYS

REACTIONS (8)
  - Skin lesion [Not Recovered/Not Resolved]
  - Skin exfoliation [Recovered/Resolved]
  - Product use in unapproved indication [Unknown]
  - Product packaging issue [Unknown]
  - Skin erosion [Recovered/Resolved]
  - Product administered at inappropriate site [Unknown]
  - Erythema [Recovered/Resolved]
  - Skin haemorrhage [Recovered/Resolved]
